FAERS Safety Report 6921816-3 (Version None)
Quarter: 2010Q3

REPORT INFORMATION
  Report Type: 
  Country: None (occurrence: None)
  Receive Date: 20100812
  Receipt Date: 20100803
  Transmission Date: 20110219
  Serious: Yes (Other)
  Sender: FDA-Public Use
  Company Number: FR-PFIZER INC-2010050796

PATIENT
  Age: 65 Year
  Sex: Male
  Weight: 89.796 kg

DRUGS (5)
  1. TAHOR [Suspect]
     Indication: HYPERCHOLESTEROLAEMIA
     Dosage: 20 MG, 1X/DAY
     Dates: start: 20080101, end: 20100501
  2. TAHOR [Suspect]
     Dosage: UNK
     Dates: start: 20100201, end: 20100414
  3. TAHOR [Suspect]
     Dosage: UNK
     Dates: start: 20080101
  4. TENORMIN [Concomitant]
     Dosage: UNK
     Dates: start: 20000101
  5. VASTAREL [Concomitant]
     Dosage: 35, UNK
     Route: 048
     Dates: start: 20000101

REACTIONS (3)
  - ARTHRALGIA [None]
  - MYALGIA [None]
  - SLEEP DISORDER [None]
